FAERS Safety Report 18726147 (Version 4)
Quarter: 2022Q2

REPORT INFORMATION
  Report Type: Spontaneous
  Country: CA (occurrence: None)
  Receive Date: 20210111
  Receipt Date: 20220504
  Transmission Date: 20220721
  Serious: Yes (Other)
  Sender: FDA-Public Use
  Company Number: CA-ROCHE-2745766

PATIENT
  Age: 40 Year
  Sex: Female

DRUGS (11)
  1. AVASTIN [Suspect]
     Active Substance: BEVACIZUMAB
     Indication: Diabetic retinal oedema
     Dosage: SOLUTION INTRAVENOUS
     Route: 031
  2. AVASTIN [Suspect]
     Active Substance: BEVACIZUMAB
     Dosage: SOLUTION FOR INFUSION
     Route: 031
  3. AVASTIN [Suspect]
     Active Substance: BEVACIZUMAB
     Route: 031
  4. LUCENTIS [Suspect]
     Active Substance: RANIBIZUMAB
     Indication: Diabetic retinal oedema
     Dosage: SOLUTION INTRAVITREAL
     Route: 065
  5. LUCENTIS [Suspect]
     Active Substance: RANIBIZUMAB
     Dosage: SOLUTION INTRAVITREAL
     Route: 031
  6. LUCENTIS [Suspect]
     Active Substance: RANIBIZUMAB
     Dosage: SOLUTION INTRAVITREAL (ROUTE OF ADMIN TEXT: OTHER)
     Route: 031
  7. LUCENTIS [Suspect]
     Active Substance: RANIBIZUMAB
     Dosage: ROUTE OF ADMIN TEXT: OTHER
     Route: 031
  8. LUCENTIS [Suspect]
     Active Substance: RANIBIZUMAB
     Dosage: ROUTE OF ADMIN TEXT: OTHER
     Route: 031
  9. LUCENTIS [Suspect]
     Active Substance: RANIBIZUMAB
     Dosage: SOLUTION INTRAVITREAL
     Route: 031
  10. BEVACIZUMAB [Suspect]
     Active Substance: BEVACIZUMAB
     Indication: Diabetic retinal oedema
     Dosage: NOT SPECIFIED
     Route: 031
  11. HUMALOG [Concomitant]
     Active Substance: INSULIN LISPRO
     Indication: Diabetic retinal oedema
     Route: 065

REACTIONS (5)
  - Eye discharge [Not Recovered/Not Resolved]
  - Eye haemorrhage [Not Recovered/Not Resolved]
  - Eye pruritus [Not Recovered/Not Resolved]
  - Nausea [Not Recovered/Not Resolved]
  - Diabetic retinal oedema [Not Recovered/Not Resolved]
